FAERS Safety Report 22228841 (Version 1)
Quarter: 2023Q2

REPORT INFORMATION
  Report Type: Spontaneous
  Country: US (occurrence: None)
  Receive Date: 20230418
  Receipt Date: 20230418
  Transmission Date: 20230722
  Serious: No
  Sender: FDA-Public Use
  Company Number: None

PATIENT
  Age: 74 Year
  Sex: Male
  Weight: 75.89 kg

DRUGS (15)
  1. ABIRATERONE [Suspect]
     Active Substance: ABIRATERONE
     Indication: Prostate cancer
     Dosage: 1000MG ONCE DAILY ORAL?
     Route: 048
     Dates: start: 202210
  2. PREDNISONE [Suspect]
     Active Substance: PREDNISONE
     Indication: Prostate cancer
     Dosage: 5MG TWICE DAILY ORAL
     Dates: start: 202210
  3. ATORVASTATIN [Concomitant]
  4. FAMOTIDINE [Concomitant]
  5. FLOMAX [Concomitant]
  6. GUAIFENESIN [Concomitant]
  7. HYOSCYAMINE [Concomitant]
  8. LASIX [Concomitant]
  9. METFORMIN [Concomitant]
  10. OMEPRAZOLE [Concomitant]
  11. SOTALOL [Concomitant]
     Active Substance: SOTALOL
  12. SPIRONOLACTONE [Concomitant]
  13. TRAMADOL [Concomitant]
  14. VITAMIN C [Concomitant]
  15. XARELTO [Concomitant]

REACTIONS (2)
  - Disease progression [None]
  - Therapy cessation [None]
